FAERS Safety Report 24757536 (Version 1)
Quarter: 2024Q4

REPORT INFORMATION
  Report Type: Spontaneous
  Country: AU (occurrence: AU)
  Receive Date: 20241220
  Receipt Date: 20241220
  Transmission Date: 20250115
  Serious: Yes (Other)
  Sender: TAKEDA
  Company Number: AU-JNJFOC-20241246948

PATIENT

DRUGS (5)
  1. VELCADE [Suspect]
     Active Substance: BORTEZOMIB
     Indication: Plasma cell myeloma refractory
     Dosage: UNK
  2. CARMUSTINE [Suspect]
     Active Substance: CARMUSTINE
     Indication: Plasma cell myeloma refractory
     Dosage: 30 MILLIGRAM/SQ. METER
  3. DOXORUBICIN HYDROCHLORIDE [Suspect]
     Active Substance: DOXORUBICIN HYDROCHLORIDE
     Indication: Plasma cell myeloma refractory
     Dosage: 30 MILLIGRAM/SQ. METER
  4. PREDNISONE [Suspect]
     Active Substance: PREDNISONE
     Indication: Plasma cell myeloma refractory
     Dosage: 60 MILLIGRAM/SQ. METER
  5. CYCLOPHOSPHAMIDE [Suspect]
     Active Substance: CYCLOPHOSPHAMIDE
     Indication: Plasma cell myeloma refractory
     Dosage: 600 MILLIGRAM/SQ. METER

REACTIONS (1)
  - Therapeutic response decreased [Unknown]
